FAERS Safety Report 13948102 (Version 2)
Quarter: 2017Q4

REPORT INFORMATION
  Report Type: Report from Study
  Country: US (occurrence: US)
  Receive Date: 20170908
  Receipt Date: 20171211
  Transmission Date: 20180320
  Serious: No
  Sender: FDA-Public Use
  Company Number: PHEH2017US028436

PATIENT
  Age: 34 Year
  Sex: Male

DRUGS (1)
  1. RYDAPT [Suspect]
     Active Substance: MIDOSTAURIN
     Indication: MALIGNANT MAST CELL NEOPLASM
     Dosage: 25 MG, BID
     Route: 048

REACTIONS (3)
  - Vomiting [Unknown]
  - Hyperglycaemia [Unknown]
  - Nausea [Unknown]

NARRATIVE: CASE EVENT DATE: 20170815
